FAERS Safety Report 4437844-6 (Version None)
Quarter: 2004Q3

REPORT INFORMATION
  Report Type: 
  Country: None (occurrence: None)
  Receive Date: 20040831
  Receipt Date: 20040721
  Transmission Date: 20050211
  Serious: Yes (Hospitalization)
  Sender: FDA-Public Use
  Company Number: 200412775FR

PATIENT
  Age: 52 Year
  Sex: Male
  Weight: 73 kg

DRUGS (6)
  1. TRIATEC [Suspect]
     Route: 048
  2. LASIX [Suspect]
     Route: 048
     Dates: end: 20040608
  3. APROVEL [Suspect]
     Route: 048
     Dates: end: 20040608
  4. ALDACTONE [Suspect]
     Route: 048
     Dates: end: 20040608
  5. LIPANTHYL ^THISSEN^ [Concomitant]
     Route: 048
     Dates: end: 20040608
  6. BISOPROLOL FUMARATE [Concomitant]
     Route: 048

REACTIONS (5)
  - DEHYDRATION [None]
  - HYPERKALAEMIA [None]
  - HYPERTRIGLYCERIDAEMIA [None]
  - HYPONATRAEMIA [None]
  - RENAL FAILURE ACUTE [None]
